FAERS Safety Report 4452430-X (Version None)
Quarter: 2004Q3

REPORT INFORMATION
  Report Type: 
  Country: None (occurrence: None)
  Receive Date: 20040917
  Receipt Date: 20040913
  Transmission Date: 20050211
  Serious: Yes (Death)
  Sender: FDA-Public Use
  Company Number: PHBS2004CO12088

PATIENT
  Age: 74 Year
  Sex: Female

DRUGS (5)
  1. DIOVAN [Suspect]
     Indication: HYPERTENSION
     Dosage: 80 MG/DAY
     Route: 048
     Dates: start: 20040816, end: 20040831
  2. ACETYLSALICYLIC ACID [Concomitant]
     Dosage: 100 MG/DAY
  3. DILATREND [Concomitant]
  4. ISOCOR [Concomitant]
  5. LANITOP [Concomitant]

REACTIONS (1)
  - INFARCTION [None]
